FAERS Safety Report 20899356 (Version 2)
Quarter: 2022Q2

REPORT INFORMATION
  Report Type: Report from Study
  Country: FR (occurrence: FR)
  Receive Date: 20220601
  Receipt Date: 20220620
  Transmission Date: 20220721
  Serious: Yes (Other)
  Sender: FDA-Public Use
  Company Number: FR-INSMED, INC.-2022-00466-FR

PATIENT
  Sex: Male

DRUGS (5)
  1. ARIKAYCE [Suspect]
     Active Substance: AMIKACIN
     Indication: Mycobacterium abscessus infection
     Dosage: 590 MILLIGRAM, UNK
     Route: 055
     Dates: start: 202202, end: 20220520
  2. ARIKAYCE [Suspect]
     Active Substance: AMIKACIN
     Dosage: 590 MILLIGRAM, QD
     Route: 055
     Dates: start: 20220609
  3. AZITHROMYCIN [Concomitant]
     Active Substance: AZITHROMYCIN
     Indication: Product used for unknown indication
     Dosage: 250 MILLIGRAM
     Route: 065
  4. LAMPRENE [Concomitant]
     Active Substance: CLOFAZIMINE
     Indication: Product used for unknown indication
     Dosage: UNK
     Route: 065
  5. IMIPENEM [Concomitant]
     Active Substance: IMIPENEM
     Indication: Product used for unknown indication
     Dosage: UNK
     Route: 042

REACTIONS (9)
  - Fungal tracheitis [Unknown]
  - Tongue fungal infection [Unknown]
  - Tongue discolouration [Not Recovered/Not Resolved]
  - Decreased appetite [Unknown]
  - Weight decreased [Not Recovered/Not Resolved]
  - General physical health deterioration [Unknown]
  - Malaise [Unknown]
  - Nausea [Unknown]
  - Off label use [Unknown]

NARRATIVE: CASE EVENT DATE: 20220101
